FAERS Safety Report 8053259-6 (Version None)
Quarter: 2012Q1

REPORT INFORMATION
  Report Type: 
  Country: None (occurrence: None)
  Receive Date: 20120118
  Receipt Date: 20120113
  Transmission Date: 20120608
  Serious: Yes (Death)
  Sender: FDA-Public Use
  Company Number: CA-ROCHE-1030658

PATIENT
  Sex: Female
  Weight: 67.646 kg

DRUGS (9)
  1. FERROUS GLUCONATE [Concomitant]
  2. DECADRON [Concomitant]
  3. AVASTIN [Suspect]
     Indication: GLIOBLASTOMA
     Route: 042
     Dates: start: 20110620
  4. CLONAZEPAM [Concomitant]
  5. KEPPRA [Concomitant]
  6. RANITIDINE [Concomitant]
  7. AVASTIN [Suspect]
     Route: 042
     Dates: start: 20110704
  8. AVASTIN [Suspect]
     Route: 042
     Dates: start: 20110817, end: 20110830
  9. PAROXETINE [Concomitant]

REACTIONS (1)
  - DEATH [None]
